FAERS Safety Report 15538007 (Version 1)
Quarter: 2018Q4

REPORT INFORMATION
  Report Type: Spontaneous
  Country: LT (occurrence: LT)
  Receive Date: 20181022
  Receipt Date: 20181022
  Transmission Date: 20190205
  Serious: Yes (Death, Other)
  Sender: FDA-Public Use
  Company Number: LT-JNJFOC-20181029650

PATIENT
  Age: 87 Year
  Sex: Male

DRUGS (13)
  1. LERCAPIN [Concomitant]
     Active Substance: LERCANIDIPINE HYDROCHLORIDE
     Route: 065
     Dates: end: 201810
  2. POTASSIUM CHLORIDE. [Concomitant]
     Active Substance: POTASSIUM CHLORIDE
     Route: 065
     Dates: end: 201810
  3. CEFUROXIME. [Concomitant]
     Active Substance: CEFUROXIME
     Route: 042
     Dates: start: 201810, end: 201810
  4. TARDYFERON [Concomitant]
     Active Substance: FERROUS SULFATE
     Route: 048
     Dates: start: 201810, end: 201810
  5. XARELTO [Suspect]
     Active Substance: RIVAROXABAN
     Indication: ATRIAL FIBRILLATION
     Route: 048
     Dates: start: 20181002, end: 20181010
  6. AMOXAPINE. [Concomitant]
     Active Substance: AMOXAPINE
     Route: 042
     Dates: start: 201810, end: 201810
  7. METFORMIN [Concomitant]
     Active Substance: METFORMIN HYDROCHLORIDE
     Indication: DIABETES MELLITUS
     Route: 065
     Dates: start: 20181002, end: 20181004
  8. NOVORAPID [Concomitant]
     Active Substance: INSULIN ASPART
     Indication: DIABETES MELLITUS
     Route: 065
     Dates: start: 20181005, end: 201810
  9. LANTUS [Concomitant]
     Active Substance: INSULIN GLARGINE
     Route: 065
     Dates: start: 20181005, end: 201810
  10. FUROSEMIDE. [Concomitant]
     Active Substance: FUROSEMIDE
     Route: 042
     Dates: end: 201810
  11. TORASEMIDE [Concomitant]
     Active Substance: TORSEMIDE
     Route: 065
     Dates: end: 201810
  12. DOXAZOSIN [Concomitant]
     Active Substance: DOXAZOSIN\DOXAZOSIN MESYLATE
     Route: 065
     Dates: end: 201810
  13. LORAZEPAM. [Concomitant]
     Active Substance: LORAZEPAM
     Route: 065
     Dates: end: 201810

REACTIONS (4)
  - Product dose omission [Unknown]
  - Ischaemic stroke [Fatal]
  - Pharyngeal haemorrhage [Unknown]
  - Epistaxis [Unknown]

NARRATIVE: CASE EVENT DATE: 20181007
